FAERS Safety Report 7176701-1 (Version None)
Quarter: 2010Q4

REPORT INFORMATION
  Report Type: 
  Country: None (occurrence: None)
  Receive Date: 20101215
  Receipt Date: 20101215
  Transmission Date: 20110411
  Serious: Yes (Death)
  Sender: FDA-Public Use
  Company Number: None

PATIENT
  Age: 81 Year
  Sex: Female

DRUGS (2)
  1. ALOXI [Suspect]
     Dosage: 0.25 Q3 WEEKS IV
     Route: 042
     Dates: start: 20100901, end: 20101101
  2. HELSSIN 2MG [Suspect]
     Dosage: 2MG Q3WEEKS IV
     Route: 042

REACTIONS (1)
  - DEATH [None]
